FAERS Safety Report 16183779 (Version 1)
Quarter: 2019Q2

REPORT INFORMATION
  Report Type: Spontaneous
  Country: US (occurrence: US)
  Receive Date: 20190411
  Receipt Date: 20190411
  Transmission Date: 20190711
  Serious: No
  Sender: FDA-Public Use
  Company Number: US-APOTEX-2018AP020636

PATIENT
  Sex: Female

DRUGS (2)
  1. ZIPRASIDONE HCL [Suspect]
     Active Substance: ZIPRASIDONE HYDROCHLORIDE
     Dosage: UNK (CAPSULES OF STRENGTH 20 MG)
     Route: 065
  2. ZIPRASIDONE HCL [Suspect]
     Active Substance: ZIPRASIDONE HYDROCHLORIDE
     Indication: PRODUCT USED FOR UNKNOWN INDICATION
     Dosage: UNK (CAPSULES OF STRENGTH 40 MG)
     Route: 065
     Dates: start: 2016

REACTIONS (1)
  - Migraine [Unknown]
